FAERS Safety Report 13441280 (Version 1)
Quarter: 2017Q2

REPORT INFORMATION
  Report Type: Report from Study
  Country: None (occurrence: CA)
  Receive Date: 20170413
  Receipt Date: 20170413
  Transmission Date: 20170830
  Serious: Yes (Other)
  Sender: FDA-Public Use
  Company Number: CA-ABBVIE-17K-028-1931914-00

PATIENT
  Sex: Female

DRUGS (1)
  1. HUMIRA [Suspect]
     Active Substance: ADALIMUMAB
     Indication: HIDRADENITIS
     Dosage: FIRST LOADING DOSE
     Route: 058
     Dates: start: 20170315, end: 20170315

REACTIONS (2)
  - Hepatitis C virus test positive [Not Recovered/Not Resolved]
  - Exposure to communicable disease [Recovering/Resolving]

NARRATIVE: CASE EVENT DATE: 2017
